FAERS Safety Report 15755786 (Version 1)
Quarter: 2018Q4

REPORT INFORMATION
  Report Type: Spontaneous
  Country: DE (occurrence: DE)
  Receive Date: 20181224
  Receipt Date: 20181224
  Transmission Date: 20190205
  Serious: Yes (Other)
  Sender: FDA-Public Use
  Company Number: DE-AUROBINDO-AUR-APL-2018-061928

PATIENT
  Age: 66 Year
  Sex: Male

DRUGS (1)
  1. VENLAFAXINE [Suspect]
     Active Substance: VENLAFAXINE HYDROCHLORIDE
     Indication: PRODUCT USED FOR UNKNOWN INDICATION
     Dosage: UNK
     Route: 065
     Dates: start: 20180906, end: 20181006

REACTIONS (6)
  - Somnolence [Recovered/Resolved]
  - Erectile dysfunction [Recovered/Resolved]
  - Constipation [Recovered/Resolved]
  - Altered state of consciousness [Recovered/Resolved]
  - Accommodation disorder [Recovered/Resolved]
  - Decreased appetite [Recovered/Resolved]
